FAERS Safety Report 11859490 (Version 2)
Quarter: 2015Q4

REPORT INFORMATION
  Report Type: Report from Study
  Country: IT (occurrence: IT)
  Receive Date: 20151221
  Receipt Date: 20151223
  Transmission Date: 20160305
  Serious: Yes (Hospitalization)
  Sender: FDA-Public Use
  Company Number: IT-ABBVIE-15P-083-1521692-00

PATIENT
  Age: 75 Year
  Sex: Female
  Weight: 43 kg

DRUGS (2)
  1. DUODOPA [Suspect]
     Active Substance: CARBIDOPA\LEVODOPA
     Indication: PARKINSON^S DISEASE
     Dosage: MD 5 +3, CR 4,1 / 3, ED 2,8
     Route: 050
     Dates: start: 20080603
  2. DUODOPA [Suspect]
     Active Substance: CARBIDOPA\LEVODOPA
     Dosage: CR 4,2/3
     Route: 050

REACTIONS (7)
  - Malabsorption [Unknown]
  - Malnutrition [Unknown]
  - Dysphagia [Unknown]
  - Spasmodic dysphonia [Unknown]
  - On and off phenomenon [Unknown]
  - Polyneuropathy [Unknown]
  - Weight decreased [Unknown]

NARRATIVE: CASE EVENT DATE: 201512
